FAERS Safety Report 24730974 (Version 1)
Quarter: 2024Q4

REPORT INFORMATION
  Report Type: Spontaneous
  Country: US (occurrence: None)
  Receive Date: 20241212
  Receipt Date: 20241212
  Transmission Date: 20250115
  Serious: Yes (Hospitalization)
  Sender: Public
  Company Number: None

PATIENT
  Age: 77 Year
  Sex: Male

DRUGS (22)
  1. TEMOZOLOMIDE [Suspect]
     Active Substance: TEMOZOLOMIDE
     Indication: Brain neoplasm malignant
     Dosage: 140 MG 1 CAPSULE QHS X 21 DAYS ON, 7 OFF
     Route: 048
     Dates: start: 202411, end: 202412
  2. ASPIRIN [Concomitant]
     Active Substance: ASPIRIN
  3. DICYCLOMINE [Concomitant]
     Active Substance: DICYCLOMINE HYDROCHLORIDE
  4. PRAVASTATIN [Concomitant]
     Active Substance: PRAVASTATIN
  5. TESTOSTERONE [Concomitant]
     Active Substance: TESTOSTERONE
  6. COENZVME Q10 [Concomitant]
  7. DAPSONE [Concomitant]
     Active Substance: DAPSONE
  8. DONEPEZIL [Concomitant]
     Active Substance: DONEPEZIL
  9. ESOMEPRAZOLE MAGNESIUM [Concomitant]
     Active Substance: ESOMEPRAZOLE MAGNESIUM
  10. ACETAMINOPHEN\HYDROCODONE [Concomitant]
     Active Substance: ACETAMINOPHEN\HYDROCODONE
  11. IPRATROPIUM [Concomitant]
     Active Substance: IPRATROPIUM
  12. LEVOTHYROXINE [Concomitant]
     Active Substance: LEVOTHYROXINE
  13. METAMUCIL [Concomitant]
     Active Substance: PLANTAGO SEED
  14. MONTELUKAST [Concomitant]
     Active Substance: MONTELUKAST SODIUM
  15. OMEGA-3 ACIDS [Concomitant]
     Active Substance: OMEGA-3 FATTY ACIDS
  16. PREDNISOLONE [Concomitant]
     Active Substance: PREDNISOLONE
  17. TAMSULOSIN [Concomitant]
     Active Substance: TAMSULOSIN
  18. TRAMADOL [Concomitant]
     Active Substance: TRAMADOL
  19. VITAMIN B12 [Concomitant]
     Active Substance: CYANOCOBALAMIN
  20. VITAMIN C [Concomitant]
     Active Substance: ASCORBIC ACID
  21. VITAMIN D [Concomitant]
     Active Substance: VITAMIN D NOS
  22. ZOLPIDEM [Concomitant]
     Active Substance: ZOLPIDEM TARTRATE

REACTIONS (2)
  - Neutropenia [None]
  - Therapy cessation [None]

NARRATIVE: CASE EVENT DATE: 20241210
